FAERS Safety Report 13316688 (Version 1)
Quarter: 2017Q1

REPORT INFORMATION
  Report Type: Spontaneous
  Country: CA (occurrence: CA)
  Receive Date: 20170310
  Receipt Date: 20170310
  Transmission Date: 20170428
  Serious: Yes (Death)
  Sender: FDA-Public Use
  Company Number: CA-TEVA-747755ACC

PATIENT
  Age: 50 Year
  Sex: Male
  Weight: 86 kg

DRUGS (2)
  1. VENLAFAXINE XR [Suspect]
     Active Substance: VENLAFAXINE HYDROCHLORIDE
  2. QUETIAPINE. [Concomitant]
     Active Substance: QUETIAPINE

REACTIONS (2)
  - Toxicologic test abnormal [Fatal]
  - Drug screen positive [Fatal]
